FAERS Safety Report 16163125 (Version 1)
Quarter: 2019Q2

REPORT INFORMATION
  Report Type: Spontaneous
  Country: KR (occurrence: KR)
  Receive Date: 20190405
  Receipt Date: 20190405
  Transmission Date: 20190711
  Serious: Yes (Death)
  Sender: FDA-Public Use
  Company Number: KR-PFIZER INC-2019148045

PATIENT
  Age: 82 Year
  Sex: Female

DRUGS (4)
  1. DIFLUCAN [Suspect]
     Active Substance: FLUCONAZOLE
     Dosage: 200 MG (2 VIALS), 1X/DAY
  2. CIPROFLOXACIN HCL [Suspect]
     Active Substance: CIPROFLOXACIN HYDROCHLORIDE
     Dosage: UNK
  3. TEICOPLANIN [Suspect]
     Active Substance: TEICOPLANIN
     Dosage: UNK
  4. DIFLUCAN [Suspect]
     Active Substance: FLUCONAZOLE
     Dosage: 100 MG (1 VIAL), 1X/DAY

REACTIONS (1)
  - Stevens-Johnson syndrome [Fatal]
